FAERS Safety Report 7095192-2 (Version None)
Quarter: 2010Q4

REPORT INFORMATION
  Report Type: 
  Country: None (occurrence: None)
  Receive Date: 20101103
  Receipt Date: 20101019
  Transmission Date: 20110411
  Serious: Yes (Other)
  Sender: FDA-Public Use
  Company Number: 2010-3208

PATIENT
  Age: 13 Year
  Sex: Male

DRUGS (1)
  1. INCRELEX [Suspect]
     Indication: GROWTH RETARDATION
     Dosage: 26 UNITS (13 UNITS, 2 IN 1 D), SUBCUTANEOUS
     Route: 058
     Dates: start: 20091231, end: 20100330

REACTIONS (4)
  - EYE SWELLING [None]
  - GLAUCOMA [None]
  - HEADACHE [None]
  - VISUAL ACUITY REDUCED [None]
